FAERS Safety Report 16149986 (Version 1)
Quarter: 2019Q2

REPORT INFORMATION
  Report Type: Spontaneous
  Country: US (occurrence: US)
  Receive Date: 20190403
  Receipt Date: 20190403
  Transmission Date: 20190711
  Serious: No
  Sender: FDA-Public Use
  Company Number: US-TEVA-2019-US-1028918

PATIENT
  Sex: Female

DRUGS (1)
  1. QVAR REDIHALER [Suspect]
     Active Substance: BECLOMETHASONE DIPROPIONATE
     Dates: start: 2015

REACTIONS (7)
  - Device defective [Unknown]
  - Product substitution issue [Unknown]
  - Product residue present [Unknown]
  - Drug ineffective [Unknown]
  - Asthma [Unknown]
  - Device issue [Unknown]
  - Product cleaning inadequate [Unknown]
